FAERS Safety Report 16580895 (Version 1)
Quarter: 2019Q3

REPORT INFORMATION
  Report Type: Spontaneous
  Country: JP (occurrence: JP)
  Receive Date: 20190716
  Receipt Date: 20190716
  Transmission Date: 20191004
  Serious: Yes (Hospitalization)
  Sender: FDA-Public Use
  Company Number: JP-JNJFOC-20190719678

PATIENT
  Age: 44 Year
  Sex: Male

DRUGS (34)
  1. LANSOPRAZOLE. [Concomitant]
     Active Substance: LANSOPRAZOLE
     Indication: PROPHYLAXIS
     Route: 048
     Dates: start: 20110507, end: 20170318
  2. BELSOMRA [Concomitant]
     Active Substance: SUVOREXANT
     Indication: INITIAL INSOMNIA
     Route: 048
     Dates: start: 20160929, end: 20170416
  3. TRULICITY [Concomitant]
     Active Substance: DULAGLUTIDE
     Indication: TYPE 2 DIABETES MELLITUS
     Route: 051
     Dates: start: 20171104
  4. INSULIN GLARGINE BS [Concomitant]
     Active Substance: INSULIN GLARGINE
     Indication: TYPE 2 DIABETES MELLITUS
     Route: 051
     Dates: start: 20180818, end: 20181201
  5. AMARYL [Concomitant]
     Active Substance: GLIMEPIRIDE
     Indication: TYPE 2 DIABETES MELLITUS
     Route: 048
     Dates: start: 20140104, end: 20181201
  6. VOALLA [Concomitant]
     Route: 062
     Dates: start: 20171202
  7. CONIEL [Concomitant]
     Active Substance: BENIDIPINE HYDROCHLORIDE
     Route: 048
     Dates: start: 20110507
  8. METFORMIN HYDROCHLORIDE/ROSIGLITAZONE MALEATE [Concomitant]
     Indication: TYPE 2 DIABETES MELLITUS
     Route: 048
     Dates: start: 20160316
  9. ZEFNART [Concomitant]
     Route: 062
     Dates: start: 20170716
  10. LOSARTAN K [Concomitant]
     Active Substance: LOSARTAN POTASSIUM
     Route: 048
     Dates: start: 20160507
  11. BYETTA [Concomitant]
     Active Substance: EXENATIDE
     Indication: TYPE 2 DIABETES MELLITUS
     Route: 058
     Dates: start: 20140201, end: 20171103
  12. UREA. [Concomitant]
     Active Substance: UREA
     Route: 062
     Dates: start: 20170511, end: 20170617
  13. LOTRIGA [Concomitant]
     Active Substance: OMEGA-3-ACID ETHYL ESTERS
     Route: 048
     Dates: start: 20171104, end: 20190406
  14. BEZAFIBRATE [Concomitant]
     Active Substance: BEZAFIBRATE
     Route: 048
     Dates: start: 20130316
  15. ANTEBATE [Concomitant]
     Active Substance: BETAMETHASONE DIPROPIONATE
     Route: 062
     Dates: start: 20170121, end: 20170715
  16. PRAVASTATIN SODIUM. [Concomitant]
     Active Substance: PRAVASTATIN SODIUM
     Route: 048
     Dates: start: 20190105
  17. EPADEL [Concomitant]
     Active Substance: ICOSAPENT
     Route: 048
     Dates: end: 20171103
  18. BAYASPIRIN [Concomitant]
     Active Substance: ASPIRIN
     Route: 048
     Dates: start: 20110507, end: 20170318
  19. CLENAFIN [Concomitant]
     Active Substance: EFINACONAZOLE
     Route: 062
     Dates: start: 20161001, end: 20170511
  20. LUSEFI [Concomitant]
     Active Substance: LUSEOGLIFLOZIN
     Indication: TYPE 2 DIABETES MELLITUS
     Route: 048
     Dates: start: 20180722
  21. FEBURIC [Concomitant]
     Active Substance: FEBUXOSTAT
     Route: 048
     Dates: start: 20190105
  22. POTASSIUM CITRATE. [Concomitant]
     Active Substance: POTASSIUM CITRATE
     Route: 048
     Dates: start: 20190105
  23. MAINTATE [Concomitant]
     Active Substance: BISOPROLOL FUMARATE
     Route: 048
     Dates: start: 20110507
  24. FUROSEMIDE. [Concomitant]
     Active Substance: FUROSEMIDE
     Route: 048
     Dates: start: 20110507
  25. ZINC OXIDE. [Concomitant]
     Active Substance: ZINC OXIDE
     Route: 062
     Dates: start: 20150205, end: 20170511
  26. ZINC OXIDE. [Concomitant]
     Active Substance: ZINC OXIDE
     Route: 062
     Dates: start: 20170716, end: 20181201
  27. TAKELDA [Concomitant]
     Active Substance: ASPIRIN\LANSOPRAZOLE
     Route: 048
     Dates: start: 20170319
  28. CANAGLIFLOZIN [Suspect]
     Active Substance: CANAGLIFLOZIN
     Indication: TYPE 2 DIABETES MELLITUS
     Dosage: 100 MILLIGRAM, QD
     Route: 048
     Dates: start: 20160507, end: 20180901
  29. NICORANDIL [Concomitant]
     Active Substance: NICORANDIL
     Route: 048
     Dates: start: 20110507
  30. ZEFNART [Concomitant]
     Route: 062
     Dates: start: 20140621, end: 20161001
  31. ZEFNART [Concomitant]
     Route: 062
     Dates: start: 20151205, end: 20170511
  32. LIDOMEX [Concomitant]
     Active Substance: PREDNISOLONE VALERATE ACETATE
     Route: 062
     Dates: start: 20151205, end: 20170511
  33. LIDOMEX [Concomitant]
     Active Substance: PREDNISOLONE VALERATE ACETATE
     Route: 062
     Dates: start: 20170716, end: 20181201
  34. FERROUS SODIUM CITRATE [Concomitant]
     Active Substance: SODIUM FERROUS CITRATE
     Route: 048
     Dates: start: 20190105

REACTIONS (1)
  - Papillary thyroid cancer [Recovering/Resolving]

NARRATIVE: CASE EVENT DATE: 20180730
